FAERS Safety Report 24568436 (Version 1)
Quarter: 2024Q4

REPORT INFORMATION
  Report Type: Spontaneous
  Country: GB (occurrence: GB)
  Receive Date: 20241031
  Receipt Date: 20241031
  Transmission Date: 20250114
  Serious: Yes (Disabling)
  Sender: BOEHRINGER INGELHEIM
  Company Number: GB-MHRA-TPP13755704C11244065YC1730289901891

PATIENT
  Age: 74 Year
  Sex: Male
  Weight: 80 kg

DRUGS (6)
  1. EMPAGLIFLOZIN [Suspect]
     Active Substance: EMPAGLIFLOZIN
     Indication: Ill-defined disorder
     Dates: start: 20241011
  2. AMLODIPINE [Concomitant]
     Active Substance: AMLODIPINE BESYLATE
     Indication: Ill-defined disorder
     Dates: start: 20240305, end: 20240920
  3. ATORVASTATIN [Concomitant]
     Active Substance: ATORVASTATIN
     Indication: Ill-defined disorder
     Dates: start: 20240305
  4. METFORMIN [Concomitant]
     Active Substance: METFORMIN HYDROCHLORIDE
     Indication: Ill-defined disorder
     Dates: start: 20240528
  5. RAMIPRIL [Concomitant]
     Active Substance: RAMIPRIL
     Indication: Ill-defined disorder
     Dosage: REPLACES AMLODIPINE
     Dates: start: 20240920
  6. EMPAGLIFLOZIN [Concomitant]
     Active Substance: EMPAGLIFLOZIN
     Indication: Ill-defined disorder
     Dosage: TAKE ONE DAILY
     Dates: start: 20241011, end: 20241030

REACTIONS (1)
  - Abdominal pain upper [Unknown]

NARRATIVE: CASE EVENT DATE: 20241011
